FAERS Safety Report 8288330-7 (Version None)
Quarter: 2012Q2

REPORT INFORMATION
  Report Type: 
  Country: None (occurrence: None)
  Receive Date: 20120416
  Receipt Date: 20120411
  Transmission Date: 20120825
  Serious: Yes (Other)
  Sender: FDA-Public Use
  Company Number: FR-PFIZER INC-2012092328

PATIENT
  Age: 60 Year
  Sex: Male

DRUGS (4)
  1. ESCITALOPRAM [Suspect]
     Dosage: UNK
  2. PROZAC [Suspect]
     Dosage: UNK
  3. CODEINE PHOSPHATE AND ACETAMINOPHEN [Suspect]
     Dosage: UNK
  4. XANAX [Suspect]
     Dosage: UNK

REACTIONS (2)
  - INTENTIONAL OVERDOSE [None]
  - STATUS EPILEPTICUS [None]
